FAERS Safety Report 6599522-7 (Version None)
Quarter: 2010Q1

REPORT INFORMATION
  Report Type: 
  Country: None (occurrence: None)
  Receive Date: 20100217
  Receipt Date: 20100203
  Transmission Date: 20100710
  Serious: Yes (Death)
  Sender: FDA-Public Use
  Company Number: 2010US000328

PATIENT
  Age: 58 Year
  Sex: Female

DRUGS (7)
  1. PROGRAF [Suspect]
     Indication: LIVER TRANSPLANT
     Dosage: 3 MG, UID/QD, ORAL
     Route: 048
     Dates: end: 20100124
  2. PREDNISONE TAB [Concomitant]
  3. NITROGLYCERIN [Concomitant]
  4. ATENOLOL [Concomitant]
  5. KEFLEX [Concomitant]
  6. INSULIN NPH (INSULIN ISOPHANE BOVINE) [Concomitant]
  7. REGLAN [Concomitant]

REACTIONS (1)
  - DEATH [None]
